FAERS Safety Report 6248019-2 (Version None)
Quarter: 2009Q2

REPORT INFORMATION
  Report Type: 
  Country: None (occurrence: None)
  Receive Date: 20090626
  Receipt Date: 20090429
  Transmission Date: 20091009
  Serious: Yes (Other)
  Sender: FDA-Public Use
  Company Number: GB-JNJCH-2009008794

PATIENT
  Sex: Female

DRUGS (1)
  1. BOOTS NICASSIST 15 MG PATCH [Suspect]
     Indication: SMOKING CESSATION THERAPY
     Route: 062
     Dates: start: 20080309, end: 20090315

REACTIONS (5)
  - ERYTHEMA [None]
  - PARAESTHESIA [None]
  - RASH PAPULAR [None]
  - RASH PRURITIC [None]
  - SCAR [None]
